FAERS Safety Report 7541362 (Version 4)
Quarter: 2013Q1

REPORT INFORMATION
  Report Type: Spontaneous
  Country: US (occurrence: US)
  Receive Date: 20100815
  Receipt Date: 20130219
  Transmission Date: 20140127
  Serious: Yes (Death, Other)
  Sender: FDA-Public Use
  Company Number: US-BAYER-201030096NA

PATIENT
  Age: 81 Year
  Sex: Male
  Weight: 136.3 kg

DRUGS (17)
  1. TRASYLOL [Suspect]
     Indication: PRODUCT USED FOR UNKNOWN INDICATION
     Dosage: BOLUS DOSE [AMOUNT NOT NOTED] FOLLOWED BY 50CC/HR CONTINUOUS
     Route: 042
     Dates: start: 20050114, end: 20050114
  2. TRASYLOL [Suspect]
     Indication: PRODUCT USED FOR UNKNOWN INDICATION
     Dosage: 1 ML, UNK
     Route: 058
     Dates: start: 20050114, end: 20050114
  3. GLYBURIDE [Concomitant]
     Dosage: 5 MG, QD
     Route: 048
     Dates: start: 20041216
  4. LASIX [Concomitant]
     Dosage: 60 MG, QD
     Route: 048
     Dates: start: 20041216
  5. DARVOCET [Concomitant]
     Dosage: THREE TIMES DAILY AS NEEDED
     Route: 048
     Dates: start: 20041216
  6. LOPID [Concomitant]
     Dosage: 600 MG, UNK
     Route: 048
     Dates: start: 20041216
  7. PLAVIX [Concomitant]
     Dosage: 75 MG, QD
     Route: 048
     Dates: start: 20041216
  8. METOPROLOL [Concomitant]
     Dosage: 25 MG, BID
     Route: 048
     Dates: start: 20041217
  9. FORANE [Concomitant]
     Dosage: UNK
     Dates: start: 20050114, end: 20050114
  10. VERSED [Concomitant]
     Dosage: UNK
     Dates: start: 20050114, end: 20050114
  11. FENTANYL [Concomitant]
     Dosage: UNK
     Dates: start: 20050114, end: 20050114
  12. PANCURONIUM [Concomitant]
     Dosage: UNK
     Dates: start: 20050114, end: 20050114
  13. ZINACEF [Concomitant]
     Dosage: 1.5 G, UNK
     Dates: start: 20050114, end: 20050114
  14. PROTAMINE [Concomitant]
     Dosage: UNK
     Dates: start: 20050114, end: 20050114
  15. LIDOCAINE [Concomitant]
     Dosage: 100 ML, UNK
     Dates: start: 20050114, end: 20050114
  16. MANNITOL [Concomitant]
     Dosage: 25 G, UNK
     Dates: start: 20050114, end: 20050114
  17. HEPARIN [Concomitant]
     Dosage: UNK
     Dates: start: 20050114, end: 20050114

REACTIONS (14)
  - Death [Fatal]
  - Renal injury [Fatal]
  - Multi-organ failure [Unknown]
  - Renal failure acute [None]
  - Renal failure [None]
  - Anxiety [Unknown]
  - Fear [Unknown]
  - Pain [Unknown]
  - Depression [Unknown]
  - Injury [Unknown]
  - Anxiety [Unknown]
  - Disability [Unknown]
  - Emotional distress [Unknown]
  - Anhedonia [Unknown]
